FAERS Safety Report 16650230 (Version 1)
Quarter: 2019Q3

REPORT INFORMATION
  Report Type: Spontaneous
  Country: US (occurrence: US)
  Receive Date: 20190731
  Receipt Date: 20190731
  Transmission Date: 20191004
  Serious: Yes (Death, Life-Threatening, Hospitalization, Other)
  Sender: FDA-Public Use
  Company Number: US-APOTEX-2019AP019167

PATIENT
  Age: 75 Year
  Sex: Male

DRUGS (4)
  1. CAPECITABINE. [Suspect]
     Active Substance: CAPECITABINE
     Indication: ADENOCARCINOMA PANCREAS
  2. GEMCITABINE. [Suspect]
     Active Substance: GEMCITABINE
     Indication: CHEMOTHERAPY
     Dosage: 1000 MG/M2, AS 1,862 MG ON DAY 1, 8, AND 15 ON A 28-DAY CYCLE FOR 6 CYCLES
     Route: 065
  3. GEMCITABINE. [Suspect]
     Active Substance: GEMCITABINE
     Indication: ADENOCARCINOMA PANCREAS
  4. CAPECITABINE. [Suspect]
     Active Substance: CAPECITABINE
     Indication: CHEMOTHERAPY
     Dosage: 620 MG/M2, AS 1,150 MG BID ON DAYS 1?21
     Route: 048

REACTIONS (5)
  - Pulmonary oedema [Unknown]
  - Pulmonary toxicity [Fatal]
  - Acute respiratory distress syndrome [Unknown]
  - Pneumonia [Fatal]
  - Respiratory failure [Unknown]
